FAERS Safety Report 6687936-6 (Version None)
Quarter: 2010Q2

REPORT INFORMATION
  Report Type: 
  Country: None (occurrence: None)
  Receive Date: 20100420
  Receipt Date: 20100409
  Transmission Date: 20101027
  Serious: Yes (Other)
  Sender: FDA-Public Use
  Company Number: DE-JNJFOC-20100402249

PATIENT
  Sex: Male

DRUGS (3)
  1. DURAGESIC-100 [Suspect]
     Indication: PAIN
     Route: 062
  2. DURAGESIC-100 [Suspect]
     Dosage: 6.25 UG/HR (A QUATER OF A 25 UG/HR PATCH)
     Route: 062
  3. NEBIVOLOL [Concomitant]
     Route: 065

REACTIONS (9)
  - CONSTIPATION [None]
  - DRY MOUTH [None]
  - HYPOTONIA [None]
  - INTERVERTEBRAL DISC DEGENERATION [None]
  - MEMORY IMPAIRMENT [None]
  - NIGHTMARE [None]
  - URINARY INCONTINENCE [None]
  - WITHDRAWAL SYNDROME [None]
  - WRONG TECHNIQUE IN DRUG USAGE PROCESS [None]
